FAERS Safety Report 16652845 (Version 9)
Quarter: 2020Q4

REPORT INFORMATION
  Report Type: Report from Study
  Country: KR (occurrence: KR)
  Receive Date: 20190731
  Receipt Date: 20201209
  Transmission Date: 20210113
  Serious: Yes (Hospitalization)
  Sender: FDA-Public Use
  Company Number: KR-EISAI MEDICAL RESEARCH-EC-2019-059855

PATIENT
  Age: 78 Year
  Sex: Male
  Weight: 63.8 kg

DRUGS (17)
  1. NORVASC [Concomitant]
     Active Substance: AMLODIPINE BESYLATE
     Dates: start: 201401
  2. MOTILITONE [Concomitant]
     Active Substance: HERBALS
     Dates: start: 20190529, end: 20190716
  3. TRANSAMIN [Concomitant]
     Active Substance: TRANEXAMIC ACID
     Dates: start: 20190508
  4. PEMBROLIZUMAB. [Suspect]
     Active Substance: PEMBROLIZUMAB
     Route: 041
     Dates: start: 20190806, end: 20190806
  5. TARGIN [Concomitant]
     Active Substance: NALOXONE HYDROCHLORIDE\OXYCODONE HYDROCHLORIDE
     Dates: start: 20190529
  6. LENVATINIB [Suspect]
     Active Substance: LENVATINIB
     Indication: HEPATOCELLULAR CARCINOMA
     Dosage: STARTING DOSE: 12 MILLIGRAM (BODY WEIGHT (BW) GREATER THAN OR EQUAL TO 60 KG), FLUCTUATED DOSES
     Route: 048
     Dates: start: 20190425, end: 20190715
  7. BEECOM [Concomitant]
     Dates: start: 20190329
  8. LENVATINIB [Suspect]
     Active Substance: LENVATINIB
     Route: 048
     Dates: start: 20190806, end: 20190826
  9. PEMBROLIZUMAB. [Suspect]
     Active Substance: PEMBROLIZUMAB
     Route: 041
     Dates: start: 20190716, end: 20190716
  10. IRCODON [Concomitant]
     Active Substance: OXYCODONE HYDROCHLORIDE
     Dates: start: 20190509
  11. SMECTA [Concomitant]
     Active Substance: MONTMORILLONITE
     Dates: start: 20190627, end: 20190720
  12. TRAMOL [Concomitant]
     Dates: start: 20190627, end: 20190703
  13. LENVATINIB [Suspect]
     Active Substance: LENVATINIB
     Route: 048
     Dates: start: 20190716, end: 20190722
  14. GASMOTIN [Concomitant]
     Active Substance: MOSAPRIDE CITRATE
     Dates: start: 20190406
  15. PEMBROLIZUMAB. [Suspect]
     Active Substance: PEMBROLIZUMAB
     Indication: HEPATOCELLULAR CARCINOMA
     Route: 041
     Dates: start: 20190425, end: 20190626
  16. BETMIGA [Concomitant]
     Active Substance: MIRABEGRON
     Dates: start: 201401
  17. HARNAL [Concomitant]
     Active Substance: TAMSULOSIN HYDROCHLORIDE
     Dates: start: 201401

REACTIONS (1)
  - Fatigue [Recovering/Resolving]

NARRATIVE: CASE EVENT DATE: 20190717
